FAERS Safety Report 18435295 (Version 1)
Quarter: 2020Q4

REPORT INFORMATION
  Report Type: Spontaneous
  Country: US (occurrence: US)
  Receive Date: 20201027
  Receipt Date: 20201027
  Transmission Date: 20210114
  Serious: Yes (Life-Threatening)
  Sender: FDA-Public Use
  Company Number: None

PATIENT
  Age: 56 Year
  Sex: Male
  Weight: 155 kg

DRUGS (1)
  1. ORITAVANCIN. [Suspect]
     Active Substance: ORITAVANCIN
     Indication: STAPHYLOCOCCAL INFECTION
     Dates: start: 20200908, end: 20200908

REACTIONS (6)
  - Dizziness [None]
  - Wheezing [None]
  - Blood pressure decreased [None]
  - Tremor [None]
  - Infusion related reaction [None]
  - Chills [None]

NARRATIVE: CASE EVENT DATE: 20200908
